FAERS Safety Report 6292636-0 (Version None)
Quarter: 2009Q3

REPORT INFORMATION
  Report Type: 
  Country: None (occurrence: None)
  Receive Date: 20090731
  Receipt Date: 20090729
  Transmission Date: 20100115
  Serious: Yes (Hospitalization, Disabling, Other)
  Sender: FDA-Public Use
  Company Number: US-PFIZER INC-2009221595

PATIENT
  Sex: Female
  Weight: 61.234 kg

DRUGS (5)
  1. ZITHROMAX [Suspect]
     Indication: SINUSITIS
     Dosage: UNK
     Dates: start: 20071103, end: 20071109
  2. TACROLIMUS [Concomitant]
  3. MYCOPHENOLATE MOFETIL [Concomitant]
  4. ALL OTHER THERAPEUTIC PRODUCTS [Concomitant]
  5. ANTIHYPERTENSIVES [Concomitant]

REACTIONS (8)
  - CARDIAC ARREST [None]
  - COGNITIVE DISORDER [None]
  - DEMYELINATION [None]
  - DRUG TOXICITY [None]
  - ENCEPHALOPATHY [None]
  - ENZYME ABNORMALITY [None]
  - PARALYSIS [None]
  - TRANSPLANT FAILURE [None]
